FAERS Safety Report 8502875-3 (Version None)
Quarter: 2012Q3

REPORT INFORMATION
  Report Type: 
  Country: None (occurrence: None)
  Receive Date: 20120705
  Receipt Date: 20120705
  Transmission Date: 20120928
  Serious: Yes (Other)
  Sender: FDA-Public Use
  Company Number: None

PATIENT
  Age: 44 Year
  Sex: Female
  Weight: 70.7611 kg

DRUGS (7)
  1. ZIPRASIDONE HCL [Suspect]
     Indication: BIPOLAR DISORDER
     Dosage: 60 MG BID PO
     Route: 048
  2. MELATONIN [Concomitant]
  3. AMLODIPINE [Concomitant]
  4. FAMOTIDINE [Concomitant]
  5. OXCARBAZEPINE [Concomitant]
  6. SAVELLA [Concomitant]
  7. BUSPIRONE HCL [Concomitant]

REACTIONS (4)
  - CONNECTIVE TISSUE DISORDER [None]
  - JOINT CREPITATION [None]
  - PLANTAR FASCIITIS [None]
  - MUSCLE CONTRACTIONS INVOLUNTARY [None]
